FAERS Safety Report 5885502-3 (Version None)
Quarter: 2008Q3

REPORT INFORMATION
  Report Type: 
  Country: None (occurrence: None)
  Receive Date: 20080916
  Receipt Date: 20080905
  Transmission Date: 20090109
  Serious: Yes (Other)
  Sender: FDA-Public Use
  Company Number: CH-AMGEN-US307308

PATIENT
  Age: 60 Year
  Sex: Male

DRUGS (1)
  1. ENBREL [Suspect]
     Indication: PSORIASIS
     Dosage: DOSE AND FREQUENCY UNKNOWN
     Route: 065
     Dates: start: 20071101

REACTIONS (1)
  - HYPERBILIRUBINAEMIA [None]
